FAERS Safety Report 13855909 (Version 1)
Quarter: 2017Q3

REPORT INFORMATION
  Report Type: Spontaneous
  Country: NZ (occurrence: NZ)
  Receive Date: 20170810
  Receipt Date: 20170810
  Transmission Date: 20171127
  Serious: Yes (Other)
  Sender: FDA-Public Use
  Company Number: NZ-IMPAX LABORATORIES, INC-2017-IPXL-02362

PATIENT
  Age: 72 Year
  Sex: Female

DRUGS (3)
  1. THYROXINE [Concomitant]
     Active Substance: LEVOTHYROXINE
     Indication: PRODUCT USED FOR UNKNOWN INDICATION
     Dosage: UNK
     Route: 065
  2. HYDROCORTISONE. [Suspect]
     Active Substance: HYDROCORTISONE
     Indication: METASTASES TO PITUITARY GLAND
     Dosage: UNK
     Route: 065
  3. CABERGOLINE. [Suspect]
     Active Substance: CABERGOLINE
     Indication: METASTASES TO PITUITARY GLAND
     Dosage: 0.5 MG, 1 /WEEK
     Route: 065

REACTIONS (1)
  - Metastases to pituitary gland [Recovering/Resolving]
